FAERS Safety Report 24921954 (Version 2)
Quarter: 2025Q1

REPORT INFORMATION
  Report Type: Spontaneous
  Country: US (occurrence: US)
  Receive Date: 20250204
  Receipt Date: 20250328
  Transmission Date: 20250409
  Serious: Yes (Hospitalization, Other)
  Sender: ACCORD
  Company Number: US-Accord-467396

PATIENT
  Age: 80 Year
  Sex: Female

DRUGS (1)
  1. ROSUVASTATIN CALCIUM [Suspect]
     Active Substance: ROSUVASTATIN CALCIUM
     Indication: Product used for unknown indication

REACTIONS (3)
  - Rhabdomyolysis [Recovered/Resolved]
  - Acute kidney injury [Recovered/Resolved]
  - Hypokalaemia [Recovered/Resolved]
